FAERS Safety Report 10158508 (Version 2)
Quarter: 2014Q2

REPORT INFORMATION
  Report Type: Report from Study
  Country: BR (occurrence: BR)
  Receive Date: 20140507
  Receipt Date: 20140507
  Transmission Date: 20141212
  Serious: Yes (Hospitalization)
  Sender: FDA-Public Use
  Company Number: PHHO2013BR014674

PATIENT
  Age: 79 Year
  Sex: Female
  Weight: 70 kg

DRUGS (4)
  1. AMN107 [Suspect]
     Indication: CHRONIC MYELOID LEUKAEMIA
     Dosage: 300 MG, BID
     Route: 048
     Dates: start: 20080925, end: 20130729
  2. AMN107 [Suspect]
     Dosage: 300 MG, BID
     Route: 048
     Dates: end: 20131129
  3. CAPTOPRIL [Concomitant]
     Indication: HYPERTENSION
     Dosage: 25 MG, UNK
  4. RIVOTRIL [Concomitant]
     Indication: ANXIETY
     Dosage: 2 MG, QD
     Dates: start: 20090930

REACTIONS (1)
  - Peripheral vascular disorder [Recovered/Resolved]
